FAERS Safety Report 4391856-X (Version None)
Quarter: 2004Q3

REPORT INFORMATION
  Report Type: 
  Country: None (occurrence: None)
  Receive Date: 20040702
  Receipt Date: 20040406
  Transmission Date: 20050211
  Serious: Yes (Other)
  Sender: FDA-Public Use
  Company Number: 2004UW06880

PATIENT
  Age: 73 Year
  Sex: Female
  Weight: 58.0604 kg

DRUGS (3)
  1. CRESTOR [Suspect]
     Indication: BLOOD CHOLESTEROL INCREASED
     Dosage: 5 MG PO
     Route: 048
     Dates: start: 20040301
  2. FOSAMAX [Concomitant]
  3. ASPIRIN [Concomitant]

REACTIONS (2)
  - CHROMATURIA [None]
  - MYALGIA [None]
